APPROVED DRUG PRODUCT: DIVALPROEX SODIUM
Active Ingredient: DIVALPROEX SODIUM
Strength: EQ 250MG VALPROIC ACID
Dosage Form/Route: TABLET, DELAYED RELEASE;ORAL
Application: A078182 | Product #002 | TE Code: AB
Applicant: UPSHER SMITH LABORATORIES LLC
Approved: Jul 29, 2008 | RLD: No | RS: No | Type: RX